FAERS Safety Report 19796111 (Version 4)
Quarter: 2023Q4

REPORT INFORMATION
  Report Type: Spontaneous
  Country: TH (occurrence: TH)
  Receive Date: 20210907
  Receipt Date: 20231122
  Transmission Date: 20240110
  Serious: Yes (Other)
  Sender: FDA-Public Use
  Company Number: NVSC2021TH196140

PATIENT
  Age: 65 Year
  Sex: Female

DRUGS (2)
  1. BROLUCIZUMAB [Suspect]
     Active Substance: BROLUCIZUMAB
     Indication: Polypoidal choroidal vasculopathy
     Dosage: UNK (RIGHT EYE)
     Route: 031
     Dates: start: 20210621
  2. BROLUCIZUMAB [Suspect]
     Active Substance: BROLUCIZUMAB
     Dosage: 6 MG (RIGHT EYE)
     Route: 031
     Dates: start: 20210823

REACTIONS (12)
  - Detachment of retinal pigment epithelium [Recovering/Resolving]
  - Blindness [Unknown]
  - Uveitis [Recovered/Resolved]
  - Visual impairment [Unknown]
  - Keratic precipitates [Unknown]
  - Iridocyclitis [Recovered/Resolved]
  - Vitritis [Unknown]
  - Anterior chamber inflammation [Unknown]
  - Anterior chamber cell [Unknown]
  - Vision blurred [Unknown]
  - Conjunctivitis [Unknown]
  - Inappropriate schedule of product administration [Unknown]

NARRATIVE: CASE EVENT DATE: 20210827
